FAERS Safety Report 12815899 (Version 1)
Quarter: 2016Q4

REPORT INFORMATION
  Report Type: Report from Study
  Country: US (occurrence: US)
  Receive Date: 20161006
  Receipt Date: 20161006
  Transmission Date: 20170207
  Serious: No
  Sender: FDA-Public Use
  Company Number: US-AMGEN-USASL2016066203

PATIENT
  Age: 88 Year
  Sex: Female

DRUGS (1)
  1. PROLIA [Suspect]
     Active Substance: DENOSUMAB
     Indication: OSTEOPOROSIS POSTMENOPAUSAL
     Dosage: , Q6MO
     Route: 065
     Dates: start: 2015, end: 2016

REACTIONS (8)
  - Rash macular [Not Recovered/Not Resolved]
  - Erythema [Not Recovered/Not Resolved]
  - Myalgia [Recovering/Resolving]
  - Pruritus [Unknown]
  - Memory impairment [Unknown]
  - Tooth loss [Unknown]
  - Gingival bleeding [Unknown]
  - Dental cleaning [Unknown]
